FAERS Safety Report 6502098-3 (Version None)
Quarter: 2009Q4

REPORT INFORMATION
  Report Type: 
  Country: None (occurrence: None)
  Receive Date: 20091214
  Receipt Date: 20091130
  Transmission Date: 20100525
  Serious: Yes (Other)
  Sender: FDA-Public Use
  Company Number: 2009SP039241

PATIENT
  Age: 86 Year
  Sex: Female

DRUGS (2)
  1. VASTAT FLAS (MIRTAZAPINE) (MIRTAZAPINE) (30 MG) [Suspect]
     Indication: DEPRESSION
     Dosage: 30 MG, QD, PO
     Route: 048
     Dates: start: 20060101, end: 20090514
  2. LEXATIN (BROMAZEPAM) [Suspect]
     Indication: DEPRESSION
     Dosage: 6 MG, QD, PO
     Route: 048
     Dates: start: 20060101, end: 20090514

REACTIONS (2)
  - DEPRESSED LEVEL OF CONSCIOUSNESS [None]
  - RESPIRATORY FAILURE [None]
